FAERS Safety Report 6573314-7 (Version None)
Quarter: 2010Q1

REPORT INFORMATION
  Report Type: 
  Country: None (occurrence: None)
  Receive Date: 20100208
  Receipt Date: 20100128
  Transmission Date: 20100710
  Serious: Yes (Death, Life-Threatening, Hospitalization)
  Sender: FDA-Public Use
  Company Number: GB-PFIZER INC-2009203750

PATIENT
  Age: 74 Year
  Sex: Male
  Weight: 73 kg

DRUGS (5)
  1. SUTENT [Suspect]
     Dosage: 50 MG, UNK
     Route: 048
     Dates: start: 20090309, end: 20090330
  2. OMEPRAZOLE [Concomitant]
     Dosage: UNK
     Route: 048
  3. PREDNISOLONE [Concomitant]
     Dosage: 5 MG, UNK
     Route: 048
  4. PROVERA [Concomitant]
     Dosage: 300 MG, UNK
     Route: 048
     Dates: start: 20090101
  5. LEVOTHYROXINE SODIUM [Concomitant]
     Dosage: 50 UG, UNK
     Route: 048

REACTIONS (2)
  - DEATH [None]
  - THROMBOCYTOPENIA [None]
